FAERS Safety Report 9332711 (Version 3)
Quarter: 2013Q3

REPORT INFORMATION
  Report Type: Spontaneous
  Country: DK (occurrence: None)
  Receive Date: 20130603
  Receipt Date: 20130911
  Transmission Date: 20140515
  Serious: Yes (Other)
  Sender: FDA-Public Use
  Company Number: AUR-APL-2013-03617

PATIENT
  Age: 54 Year
  Sex: Female
  Weight: 67 kg

DRUGS (4)
  1. SIMVASTATIN [Suspect]
     Indication: HYPERCHOLESTEROLAEMIA
     Route: 048
     Dates: start: 20100520, end: 20130115
  2. LEVEMIR (INSULIN DETEMIR) [Concomitant]
  3. RAMIPRIL (RAMIPRIL) [Concomitant]
  4. ELTROXIN (LEVOTHYROXINE SODIUM) [Concomitant]

REACTIONS (27)
  - Diabetes mellitus [None]
  - Arthritis [None]
  - Myalgia [None]
  - Memory impairment [None]
  - Insomnia [None]
  - Tinnitus [None]
  - Nausea [None]
  - Pruritus [None]
  - Fatigue [None]
  - Muscle disorder [None]
  - Aggression [None]
  - Crying [None]
  - Blood thyroid stimulating hormone increased [None]
  - High density lipoprotein decreased [None]
  - Restlessness [None]
  - Anxiety [None]
  - Mental impairment [None]
  - Muscular weakness [None]
  - Pain in extremity [None]
  - Epistaxis [None]
  - Cough [None]
  - Depression [None]
  - Abdominal discomfort [None]
  - Dyspnoea [None]
  - Back pain [None]
  - Hearing impaired [None]
  - Muscle atrophy [None]
